FAERS Safety Report 7831888-X (Version None)
Quarter: 2011Q4

REPORT INFORMATION
  Report Type: 
  Country: None (occurrence: None)
  Receive Date: 20111021
  Receipt Date: 20111021
  Transmission Date: 20120403
  Serious: No
  Sender: FDA-Public Use
  Company Number: US-B.I. PHARMACEUTICALS,INC./RIDGEFIELD-2011-BP-24697BP

PATIENT
  Sex: Female

DRUGS (5)
  1. ZANTAC [Suspect]
     Indication: DYSPEPSIA
     Route: 048
     Dates: start: 20111020, end: 20111020
  2. CARVEDILOL [Concomitant]
     Indication: HYPERTENSION
     Dosage: 6.5 MG
     Route: 048
  3. GLIMEPIRIDE [Concomitant]
     Indication: DIABETES MELLITUS
     Dosage: 4 MG
     Route: 048
  4. ZANTAC [Suspect]
  5. CARVEDILOL [Concomitant]
     Indication: HEART RATE IRREGULAR

REACTIONS (3)
  - SENSATION OF FOREIGN BODY [None]
  - DYSPHAGIA [None]
  - DYSPNOEA [None]
